FAERS Safety Report 12869506 (Version 1)
Quarter: 2016Q4

REPORT INFORMATION
  Report Type: Spontaneous
  Country: US (occurrence: US)
  Receive Date: 20161019
  Receipt Date: 20161019
  Transmission Date: 20170207
  Serious: Yes (Hospitalization)
  Sender: FDA-Public Use
  Company Number: None

PATIENT
  Age: 67 Year
  Sex: Male
  Weight: 51.4 kg

DRUGS (1)
  1. ASPIRIN. [Suspect]
     Active Substance: ASPIRIN
     Indication: CORONARY ARTERY DISEASE
     Route: 048
     Dates: start: 20160412, end: 20160915

REACTIONS (10)
  - Hiatus hernia [None]
  - Duodenal ulcer [None]
  - Anaemia [None]
  - Refusal of treatment by patient [None]
  - Gastritis erosive [None]
  - Gastric haemorrhage [None]
  - Intentional product use issue [None]
  - Oesophageal stenosis [None]
  - Oesophagitis [None]
  - Gastrooesophageal reflux disease [None]

NARRATIVE: CASE EVENT DATE: 20160912
